FAERS Safety Report 25733075 (Version 1)
Quarter: 2025Q3

REPORT INFORMATION
  Report Type: Spontaneous
  Country: CN (occurrence: CN)
  Receive Date: 20250828
  Receipt Date: 20250828
  Transmission Date: 20251021
  Serious: Yes (Hospitalization)
  Sender: BEIGENE
  Company Number: CN-BEIGENE-BGN-2025-014158

PATIENT
  Age: 60 Year
  Weight: 83 kg

DRUGS (13)
  1. TISLELIZUMAB [Suspect]
     Active Substance: TISLELIZUMAB
     Indication: Lung neoplasm malignant
  2. TISLELIZUMAB [Suspect]
     Active Substance: TISLELIZUMAB
     Route: 041
  3. TISLELIZUMAB [Suspect]
     Active Substance: TISLELIZUMAB
     Route: 041
  4. TISLELIZUMAB [Suspect]
     Active Substance: TISLELIZUMAB
  5. BEVACIZUMAB [Concomitant]
     Active Substance: BEVACIZUMAB
     Indication: Lung neoplasm malignant
  6. BEVACIZUMAB [Concomitant]
     Active Substance: BEVACIZUMAB
  7. BEVACIZUMAB [Concomitant]
     Active Substance: BEVACIZUMAB
  8. BEVACIZUMAB [Concomitant]
     Active Substance: BEVACIZUMAB
  9. BEVACIZUMAB [Concomitant]
     Active Substance: BEVACIZUMAB
  10. PEMETREXED [Concomitant]
     Active Substance: PEMETREXED
     Indication: Lung neoplasm malignant
  11. PEMETREXED [Concomitant]
     Active Substance: PEMETREXED
  12. CISPLATIN [Concomitant]
     Active Substance: CISPLATIN
     Indication: Lung neoplasm malignant
  13. CARBOPLATIN [Concomitant]
     Active Substance: CARBOPLATIN
     Indication: Lung neoplasm malignant

REACTIONS (7)
  - Immune-mediated hypothyroidism [Recovering/Resolving]
  - Productive cough [Unknown]
  - Oropharyngeal discomfort [Unknown]
  - Cough [Unknown]
  - Decreased appetite [Unknown]
  - Hypopituitarism [Recovering/Resolving]
  - Gastrointestinal disorder [Unknown]
